FAERS Safety Report 14310730 (Version 1)
Quarter: 2017Q4

REPORT INFORMATION
  Report Type: Spontaneous
  Country: DE (occurrence: DE)
  Receive Date: 20171220
  Receipt Date: 20171220
  Transmission Date: 20180321
  Serious: Yes (Hospitalization)
  Sender: FDA-Public Use
  Company Number: DE-UCBSA-2017040992

PATIENT
  Age: 1 Month
  Sex: Male
  Weight: 3.37 kg

DRUGS (1)
  1. KEPPRA [Suspect]
     Active Substance: LEVETIRACETAM
     Indication: EPILEPSY
     Dosage: 40 MG, 2X/DAY (BID) (STRENGTH:100MG/ML)
     Route: 048
     Dates: end: 20171009

REACTIONS (5)
  - Ammonia increased [Unknown]
  - Hepatic function abnormal [Unknown]
  - Hepatic enzyme increased [Unknown]
  - Blood bilirubin increased [Recovering/Resolving]
  - Off label use [Unknown]

NARRATIVE: CASE EVENT DATE: 20171003
